FAERS Safety Report 7129463-8 (Version None)
Quarter: 2010Q4

REPORT INFORMATION
  Report Type: 
  Country: None (occurrence: None)
  Receive Date: 20101116
  Receipt Date: 20101104
  Transmission Date: 20110411
  Serious: Yes (Hospitalization)
  Sender: FDA-Public Use
  Company Number: 021245

PATIENT
  Sex: Female

DRUGS (10)
  1. VIMPAT [Suspect]
     Indication: EPILEPSY
     Dosage: (ORAL), (50 MG BID ORAL) (REDUCED FROM PREVIOUS DOSE OF 50 MG TWICE DAILY ORAL)
     Route: 048
     Dates: start: 20100701, end: 20100704
  2. VIMPAT [Suspect]
     Indication: EPILEPSY
     Dosage: (ORAL), (50 MG BID ORAL) (REDUCED FROM PREVIOUS DOSE OF 50 MG TWICE DAILY ORAL)
     Route: 048
     Dates: start: 20100705, end: 20100901
  3. VIMPAT [Suspect]
     Indication: EPILEPSY
     Dosage: (ORAL), (50 MG BID ORAL) (REDUCED FROM PREVIOUS DOSE OF 50 MG TWICE DAILY ORAL)
     Route: 048
     Dates: start: 20100901, end: 20100921
  4. LAMICTAL [Concomitant]
  5. GAVISCON /00237601/ [Concomitant]
  6. OMEPRAZOLE [Concomitant]
  7. AMLOR [Concomitant]
  8. SODIUM ALGINATE [Concomitant]
  9. SODIUM BICARBONATE [Concomitant]
  10. URBANYL [Concomitant]

REACTIONS (15)
  - AGITATION [None]
  - APATHY [None]
  - APHAGIA [None]
  - BEDRIDDEN [None]
  - CONFUSIONAL STATE [None]
  - DISORIENTATION [None]
  - DISTURBANCE IN ATTENTION [None]
  - DYSSTASIA [None]
  - ELECTROENCEPHALOGRAM ABNORMAL [None]
  - GENERAL PHYSICAL CONDITION ABNORMAL [None]
  - NAUSEA [None]
  - PERSECUTORY DELUSION [None]
  - TREMOR [None]
  - VERTIGO [None]
  - VOMITING [None]
